FAERS Safety Report 9194253 (Version 1)
Quarter: 2013Q1

REPORT INFORMATION
  Report Type: Spontaneous
  Country: DE (occurrence: DE)
  Receive Date: 20130327
  Receipt Date: 20130327
  Transmission Date: 20140127
  Serious: Yes (Hospitalization, Other)
  Sender: FDA-Public Use
  Company Number: GXKR2013DE001266

PATIENT
  Sex: Male

DRUGS (6)
  1. BICALUTAMIDE [Suspect]
     Indication: PROSTATIC SPECIFIC ANTIGEN INCREASED
     Dosage: 50 MG, QD
     Route: 048
     Dates: start: 20130122, end: 20130219
  2. BICALUTAMIDE [Suspect]
     Dosage: 50 MG, Q48H
     Route: 048
     Dates: start: 20121122, end: 20130121
  3. BENAZEPRIL AL [Concomitant]
     Dosage: 10 MG, QD
     Route: 048
  4. SIMVAHEXAL [Concomitant]
     Dosage: 30 MG, QHS
     Route: 048
  5. TORASEMID AL [Concomitant]
     Dosage: 2.5 MG, UNK
     Route: 048
  6. VITAMIN D3-HEVERT [Concomitant]
     Dosage: 0.025 MG, Q48H
     Route: 048

REACTIONS (2)
  - Polymyalgia rheumatica [Unknown]
  - Pain [Unknown]
